FAERS Safety Report 7846123-6 (Version None)
Quarter: 2011Q4

REPORT INFORMATION
  Report Type: 
  Country: None (occurrence: None)
  Receive Date: 20111025
  Receipt Date: 20111010
  Transmission Date: 20120403
  Serious: Yes (Hospitalization)
  Sender: FDA-Public Use
  Company Number: DE-WATSON-2011-16292

PATIENT
  Sex: Male

DRUGS (2)
  1. CEFUROXIME [Concomitant]
     Indication: PRODUCT USED FOR UNKNOWN INDICATION
     Dosage: UNK
     Route: 065
  2. TRELSTAR [Suspect]
     Indication: PROSTATE CANCER
     Dosage: 11.25MG, UNK
     Route: 058
     Dates: start: 20110725

REACTIONS (1)
  - INGUINAL HERNIA [None]
